FAERS Safety Report 13384701 (Version 2)
Quarter: 2017Q2

REPORT INFORMATION
  Report Type: Spontaneous
  Country: JP (occurrence: JP)
  Receive Date: 20170329
  Receipt Date: 20170425
  Transmission Date: 20170830
  Serious: Yes (Death, Hospitalization)
  Sender: FDA-Public Use
  Company Number: JP-SA-2017SA049847

PATIENT
  Age: 80 Year
  Sex: Male

DRUGS (1)
  1. BCG FOR IMMUNOTHERAPY [Suspect]
     Active Substance: BACILLUS CALMETTE-GUERIN ANTIGEN, UNSPECIFIED SUBSTRAIN
     Indication: BLADDER CANCER
     Route: 065

REACTIONS (9)
  - Staphylococcal sepsis [Fatal]
  - Palpable purpura [Recovering/Resolving]
  - Henoch-Schonlein purpura nephritis [Recovering/Resolving]
  - Abdominal distension [Recovering/Resolving]
  - Acute kidney injury [Recovering/Resolving]
  - Oedema [Recovering/Resolving]
  - Diarrhoea [Recovering/Resolving]
  - Glomerulonephritis rapidly progressive [Recovering/Resolving]
  - Hypersensitivity vasculitis [Recovering/Resolving]
